FAERS Safety Report 9234600 (Version 2)
Quarter: 2013Q2

REPORT INFORMATION
  Report Type: Spontaneous
  Country: DE (occurrence: DE)
  Receive Date: 20130416
  Receipt Date: 20130422
  Transmission Date: 20140414
  Serious: Yes (Death, Life-Threatening)
  Sender: FDA-Public Use
  Company Number: DE-ASTRAZENECA-2013SE24666

PATIENT
  Age: 85 Year
  Sex: Female

DRUGS (10)
  1. SEROQUEL PROLONG [Suspect]
     Route: 048
     Dates: end: 20120828
  2. DIPIPERON [Suspect]
     Dosage: 20-40 MG/DAY
     Route: 048
     Dates: start: 20120820
  3. JONOSTERIL [Suspect]
     Route: 048
     Dates: start: 20120820, end: 20120829
  4. JONOSTERIL [Suspect]
     Route: 048
     Dates: start: 20120830
  5. TAVOR [Concomitant]
     Route: 048
     Dates: start: 20120831
  6. BUPRENORPHINE [Concomitant]
     Indication: DYSPNOEA
     Route: 048
     Dates: start: 20120902, end: 20120902
  7. MADOPAR [Concomitant]
     Route: 048
     Dates: end: 20120830
  8. FUROSEMIDE [Concomitant]
     Route: 048
     Dates: start: 20120824, end: 20120829
  9. FUROSEMIDE [Concomitant]
     Route: 048
     Dates: start: 20120830, end: 20120901
  10. PIPERACILLIN [Concomitant]
     Dosage: 8/1.0 MG
     Route: 048
     Dates: start: 20120827, end: 20120901

REACTIONS (3)
  - Death [Fatal]
  - Pulmonary oedema [Unknown]
  - Hypotension [Unknown]
